FAERS Safety Report 4748485-5 (Version None)
Quarter: 2005Q3

REPORT INFORMATION
  Report Type: 
  Country: None (occurrence: None)
  Receive Date: 20050818
  Receipt Date: 20050818
  Transmission Date: 20060218
  Serious: Yes (Hospitalization)
  Sender: FDA-Public Use
  Company Number: None

PATIENT
  Age: 56 Year
  Sex: Female
  Weight: 48.5349 kg

DRUGS (1)
  1. CIPROFLOXACIN [Suspect]
     Indication: URINARY TRACT INFECTION
     Dosage: 250 MG PO Q12H
     Route: 048
     Dates: start: 20050802, end: 20050809

REACTIONS (5)
  - HYPERSENSITIVITY [None]
  - RASH [None]
  - SENSATION OF FOREIGN BODY [None]
  - STEVENS-JOHNSON SYNDROME [None]
  - SWELLING FACE [None]
